FAERS Safety Report 5637299-X (Version None)
Quarter: 2008Q1

REPORT INFORMATION
  Report Type: 
  Country: None (occurrence: None)
  Receive Date: 20080219
  Receipt Date: 20080204
  Transmission Date: 20080703
  Serious: Yes (Other)
  Sender: FDA-Public Use
  Company Number: CHPA2008US02522

PATIENT
  Age: 39 Year
  Sex: Female

DRUGS (1)
  1. NICOTINE [Suspect]
     Dosage: 15 GUMS, QD, BUCCAL
     Route: 002

REACTIONS (3)
  - DRUG DEPENDENCE [None]
  - INTENTIONAL DRUG MISUSE [None]
  - STRESS [None]
